FAERS Safety Report 22361963 (Version 1)
Quarter: 2023Q2

REPORT INFORMATION
  Report Type: Spontaneous
  Country: US (occurrence: US)
  Receive Date: 20230524
  Receipt Date: 20230524
  Transmission Date: 20230721
  Serious: Yes (Hospitalization, Other)
  Sender: FDA-Public Use
  Company Number: US-NOVAST LABORATORIES INC.-2023NOV000253

PATIENT
  Age: 61 Year
  Sex: Female

DRUGS (4)
  1. FLUOROURACIL [Suspect]
     Active Substance: FLUOROURACIL
     Indication: Colon cancer stage III
     Dosage: UNK
     Route: 065
  2. LEUCOVORIN [Suspect]
     Active Substance: LEUCOVORIN
     Indication: Colon cancer stage III
     Dosage: UNK
     Route: 065
  3. OXALIPLATIN [Suspect]
     Active Substance: OXALIPLATIN
     Indication: Colon cancer stage III
     Dosage: UNK
     Route: 065
  4. MIDODRINE [Concomitant]
     Active Substance: MIDODRINE
     Indication: Hypotension
     Dosage: UNK
     Route: 065

REACTIONS (3)
  - Encephalopathy [Recovering/Resolving]
  - Posterior reversible encephalopathy syndrome [Recovering/Resolving]
  - Hyperammonaemia [Recovering/Resolving]
